FAERS Safety Report 7715678-4 (Version None)
Quarter: 2011Q3

REPORT INFORMATION
  Report Type: 
  Country: None (occurrence: None)
  Receive Date: 20110829
  Receipt Date: 20110825
  Transmission Date: 20111222
  Serious: Yes (Other)
  Sender: FDA-Public Use
  Company Number: US-PFIZER INC-2011198137

PATIENT
  Sex: Female

DRUGS (5)
  1. LIPITOR [Suspect]
     Dosage: 20 MG
     Dates: start: 19980101
  2. ACETYLSALICYLIC ACID [Concomitant]
     Dosage: 81 MG, DAILY
  3. LIPITOR [Suspect]
     Dosage: 40 MG, UNK
     Dates: start: 19990101
  4. LIPITOR [Suspect]
     Indication: BLOOD CHOLESTEROL INCREASED
     Dosage: 10 MG, DAILY
     Dates: start: 19970101
  5. METOPROLOL [Concomitant]
     Dosage: 50 MG, ONE TABLET IN MORNING AND HALF TABLET AT NIGHT

REACTIONS (1)
  - CORONARY ARTERY BYPASS [None]
